FAERS Safety Report 17213630 (Version 10)
Quarter: 2021Q1

REPORT INFORMATION
  Report Type: Report from Study
  Country: US (occurrence: US)
  Receive Date: 20191230
  Receipt Date: 20210105
  Transmission Date: 20210419
  Serious: Yes (Hospitalization, Other)
  Sender: FDA-Public Use
  Company Number: US-B.I. PHARMACEUTICALS,INC./RIDGEFIELD-2019-BI-104508

PATIENT
  Age: 80 Year
  Sex: Female

DRUGS (4)
  1. OFEV [Suspect]
     Active Substance: NINTEDANIB
     Dosage: OFEV DOSE 200MG DAILY
     Route: 048
     Dates: start: 20170306
  2. OFEV [Suspect]
     Active Substance: NINTEDANIB
     Route: 048
     Dates: start: 2016
  3. LOPERAMIDE [Suspect]
     Active Substance: LOPERAMIDE
     Indication: DIARRHOEA
  4. OFEV [Suspect]
     Active Substance: NINTEDANIB
     Indication: IDIOPATHIC PULMONARY FIBROSIS
     Dosage: OFEV 100 MG TWICE DAILY
     Route: 048
     Dates: start: 20160401

REACTIONS (19)
  - Vomiting [Unknown]
  - Cystitis [Unknown]
  - Weight decreased [Not Recovered/Not Resolved]
  - Epistaxis [Recovered/Resolved]
  - Dizziness [Unknown]
  - Urinary tract infection [Unknown]
  - Gastrooesophageal reflux disease [Unknown]
  - Nausea [Unknown]
  - Decreased appetite [Unknown]
  - Blood sodium decreased [Unknown]
  - Diarrhoea [Unknown]
  - Diarrhoea [Not Recovered/Not Resolved]
  - Spinal fracture [Unknown]
  - Nasal congestion [Unknown]
  - Cataract [Unknown]
  - Asthenia [Unknown]
  - Idiopathic pulmonary fibrosis [Not Recovered/Not Resolved]
  - Cough [Unknown]
  - Nausea [Not Recovered/Not Resolved]

NARRATIVE: CASE EVENT DATE: 201910
